FAERS Safety Report 10207459 (Version 3)
Quarter: 2014Q3

REPORT INFORMATION
  Report Type: Spontaneous
  Country: US (occurrence: US)
  Receive Date: 20140530
  Receipt Date: 20140815
  Transmission Date: 20150326
  Serious: Yes (Other)
  Sender: FDA-Public Use
  Company Number: US-BRISTOL-MYERS SQUIBB COMPANY-20225124

PATIENT
  Age: 2 Year
  Sex: Female

DRUGS (12)
  1. VIRAMUNE [Suspect]
     Active Substance: NEVIRAPINE
  2. NORVIR [Suspect]
     Active Substance: RITONAVIR
  3. CRIXIVAN [Suspect]
     Active Substance: INDINAVIR SULFATE
     Indication: HIV INFECTION
     Dosage: CAPS
     Route: 048
  4. LAMIVUDINE AND ZIDOVUDINE [Suspect]
     Active Substance: LAMIVUDINE\ZIDOVUDINE
  5. KALETRA [Suspect]
     Active Substance: LOPINAVIR\RITONAVIR
  6. PREZISTA [Suspect]
     Active Substance: DARUNAVIR ETHANOLATE
  7. VIRACEPT [Suspect]
     Active Substance: NELFINAVIR MESYLATE
  8. EMTRIVA [Suspect]
     Active Substance: EMTRICITABINE
  9. STAVUDINE. [Suspect]
     Active Substance: STAVUDINE
  10. SUSTIVA TABS [Suspect]
     Active Substance: EFAVIRENZ
     Route: 048
  11. LEXIVA [Suspect]
     Active Substance: FOSAMPRENAVIR CALCIUM
  12. APTIVUS [Suspect]
     Active Substance: TIPRANAVIR

REACTIONS (1)
  - Drug resistance [Unknown]
